FAERS Safety Report 5636503-1 (Version None)
Quarter: 2008Q1

REPORT INFORMATION
  Report Type: 
  Country: None (occurrence: None)
  Receive Date: 20080219
  Receipt Date: 20080219
  Transmission Date: 20080703
  Serious: No
  Sender: FDA-Public Use
  Company Number: None

PATIENT
  Age: 65 Year
  Sex: Female
  Weight: 68.9467 kg

DRUGS (1)
  1. TRI-ESTROGEN FORMULA 2.5MG MOORE'S COMPOUNDING PHARMACY [Suspect]
     Indication: HORMONE REPLACEMENT THERAPY
     Dates: start: 20080205, end: 20080207

REACTIONS (1)
  - PHARMACEUTICAL PRODUCT COMPLAINT [None]
